FAERS Safety Report 7305750-5 (Version None)
Quarter: 2011Q1

REPORT INFORMATION
  Report Type: 
  Country: None (occurrence: None)
  Receive Date: 20110222
  Receipt Date: 20110215
  Transmission Date: 20110831
  Serious: Yes (Hospitalization)
  Sender: FDA-Public Use
  Company Number: B0693241A

PATIENT
  Sex: Female

DRUGS (1)
  1. TYVERB [Suspect]
     Dosage: 1000MG PER DAY
     Route: 048
     Dates: start: 20101126

REACTIONS (2)
  - PNEUMONIA [None]
  - CONDITION AGGRAVATED [None]
